FAERS Safety Report 16424656 (Version 3)
Quarter: 2019Q3

REPORT INFORMATION
  Report Type: Spontaneous
  Country: US (occurrence: US)
  Receive Date: 20190613
  Receipt Date: 20190827
  Transmission Date: 20191004
  Serious: No
  Sender: FDA-Public Use
  Company Number: US-CELGENEUS-USA-20190603120

PATIENT
  Age: 85 Year
  Sex: Female

DRUGS (1)
  1. OTEZLA [Suspect]
     Active Substance: APREMILAST
     Indication: PSORIASIS
     Dosage: 60 MILLIGRAM
     Route: 048
     Dates: start: 201905

REACTIONS (5)
  - Diarrhoea [Unknown]
  - Therapeutic response decreased [Unknown]
  - Abdominal discomfort [Unknown]
  - Nausea [Unknown]
  - Product dose omission [Unknown]

NARRATIVE: CASE EVENT DATE: 20190607
